FAERS Safety Report 17028412 (Version 1)
Quarter: 2019Q4

REPORT INFORMATION
  Report Type: Spontaneous
  Country: US (occurrence: US)
  Receive Date: 20191113
  Receipt Date: 20191113
  Transmission Date: 20200122
  Serious: No
  Sender: FDA-Public Use
  Company Number: NVSC2019US031331

PATIENT
  Age: 74 Year
  Sex: Female

DRUGS (4)
  1. DARBEPOETIN ALFA [Suspect]
     Active Substance: DARBEPOETIN ALFA
     Indication: INTRADUCTAL PROLIFERATIVE BREAST LESION
     Route: 065
  2. TACROLIMUS. [Suspect]
     Active Substance: TACROLIMUS
     Indication: INTRADUCTAL PROLIFERATIVE BREAST LESION
     Route: 065
  3. PREDNISONE. [Suspect]
     Active Substance: PREDNISONE
     Indication: INTRADUCTAL PROLIFERATIVE BREAST LESION
     Route: 065
  4. MYCOPHENOLATE MOFETIL. [Suspect]
     Active Substance: MYCOPHENOLATE MOFETIL
     Indication: INTRADUCTAL PROLIFERATIVE BREAST LESION
     Route: 065

REACTIONS (2)
  - Extramedullary haemopoiesis [Unknown]
  - Product use in unapproved indication [Unknown]
